FAERS Safety Report 17810095 (Version 1)
Quarter: 2020Q2

REPORT INFORMATION
  Report Type: Spontaneous
  Country: US (occurrence: US)
  Receive Date: 20200521
  Receipt Date: 20200521
  Transmission Date: 20200714
  Serious: Yes (Hospitalization)
  Sender: FDA-Public Use
  Company Number: US-CIPLA LTD.-2020US03467

PATIENT

DRUGS (14)
  1. RINGER LACTATE [SODIUM LACTATE] [Suspect]
     Active Substance: SODIUM LACTATE
     Indication: PANCREATITIS ACUTE
  2. ATORVASTATIN [Suspect]
     Active Substance: ATORVASTATIN
     Indication: HYPERTRIGLYCERIDAEMIA
     Dosage: 40 MILLIGRAM, QD
     Route: 065
  3. INSULIN [Suspect]
     Active Substance: INSULIN NOS
     Indication: HYPERTRIGLYCERIDAEMIA
     Dosage: UNK
     Route: 042
  4. INSULIN [Suspect]
     Active Substance: INSULIN NOS
     Indication: PANCREATITIS ACUTE
     Dosage: UNK
  5. HEPARIN [Suspect]
     Active Substance: HEPARIN SODIUM
     Indication: PANCREATITIS ACUTE
  6. FENOFIBRATE. [Suspect]
     Active Substance: FENOFIBRATE
     Indication: PANCREATITIS ACUTE
  7. RINGER LACTATE [SODIUM LACTATE] [Suspect]
     Active Substance: SODIUM LACTATE
     Indication: HYPERTRIGLYCERIDAEMIA
     Dosage: UNK, IV INFUSION
     Route: 042
  8. GEMFIBROZIL. [Suspect]
     Active Substance: GEMFIBROZIL
     Indication: HYPERTRIGLYCERIDAEMIA
     Dosage: 600 MILLIGRAM, BID
     Route: 065
  9. HEPARIN [Suspect]
     Active Substance: HEPARIN SODIUM
     Indication: HYPERTRIGLYCERIDAEMIA
     Dosage: UNK
  10. GEMFIBROZIL. [Suspect]
     Active Substance: GEMFIBROZIL
     Indication: PANCREATITIS ACUTE
  11. DEXTROSE. [Suspect]
     Active Substance: DEXTROSE
     Indication: HYPERTRIGLYCERIDAEMIA
     Dosage: UNK
  12. DEXTROSE. [Suspect]
     Active Substance: DEXTROSE
     Indication: PANCREATITIS ACUTE
  13. ATORVASTATIN [Suspect]
     Active Substance: ATORVASTATIN
     Indication: PANCREATITIS ACUTE
  14. FENOFIBRATE. [Suspect]
     Active Substance: FENOFIBRATE
     Indication: HYPERTRIGLYCERIDAEMIA
     Dosage: 40 MILLIGRAM, QD
     Route: 065

REACTIONS (1)
  - Drug ineffective [Unknown]
